FAERS Safety Report 13114247 (Version 2)
Quarter: 2017Q1

REPORT INFORMATION
  Report Type: Spontaneous
  Country: US (occurrence: US)
  Receive Date: 20170113
  Receipt Date: 20170124
  Transmission Date: 20170428
  Serious: No
  Sender: FDA-Public Use
  Company Number: US-PFIZER INC-2017014307

PATIENT
  Age: 61 Year
  Sex: Male
  Weight: 88.45 kg

DRUGS (4)
  1. PROCAINE [Concomitant]
     Active Substance: PROCAINE
  2. SKELAXIN [Concomitant]
     Active Substance: METAXALONE
     Indication: MUSCLE SPASMS
     Dosage: 800 MG, UNK
  3. VIAGRA [Suspect]
     Active Substance: SILDENAFIL CITRATE
     Indication: ERECTILE DYSFUNCTION
     Dosage: 100 MG, AS NEEDED (ONCE A DAY)
     Route: 048
     Dates: start: 20150526
  4. IBUPROFEN. [Concomitant]
     Active Substance: IBUPROFEN
     Indication: PAIN

REACTIONS (2)
  - Drug ineffective [Unknown]
  - Expired product administered [Unknown]
